FAERS Safety Report 9015173 (Version 3)
Quarter: 2013Q1

REPORT INFORMATION
  Report Type: Spontaneous
  Country: US (occurrence: None)
  Receive Date: 20130103
  Receipt Date: 20130122
  Transmission Date: 20140127
  Serious: Yes (Death, Hospitalization)
  Sender: FDA-Public Use
  Company Number: 2012AL000105

PATIENT
  Age: 70 Year
  Sex: Male
  Weight: 71.1 kg

DRUGS (11)
  1. FOLOTYN [Suspect]
     Indication: T-CELL LYMPHOMA
     Route: 042
     Dates: start: 20120911, end: 20121113
  2. CYCLOPHOSPHAMIDE (CYCLOPHOSPHAMIDE) [Suspect]
     Indication: T-CELL LYMPHOMA
     Route: 042
     Dates: start: 20120828, end: 20121016
  3. CETRIZINE [Concomitant]
  4. DAPSONE [Concomitant]
  5. FOLIC ACID [Concomitant]
  6. LYSINE [Concomitant]
  7. OMEPRAZOLE [Concomitant]
  8. ONDANSETRON [Concomitant]
  9. VINCRISTINE [Suspect]
     Indication: T-CELL LYMPHOMA
     Route: 042
     Dates: start: 20120828, end: 20121016
  10. ETOPOSIDE (ETOPOSIDE) [Suspect]
     Indication: T-CELL LYMPHOMA
     Route: 042
     Dates: start: 20120828, end: 20121016
  11. PREDNISONE (PREDNISONE) [Suspect]
     Indication: T-CELL LYMPHOMA
     Route: 042
     Dates: start: 20120828, end: 20121016

REACTIONS (36)
  - Respiratory failure [None]
  - Renal failure acute [None]
  - Sepsis [None]
  - Anaemia [None]
  - Diarrhoea [None]
  - Fall [None]
  - Dehydration [None]
  - Hypotension [None]
  - Weight decreased [None]
  - Aspartate aminotransferase increased [None]
  - Alanine aminotransferase increased [None]
  - Blood alkaline phosphatase increased [None]
  - Blood bilirubin increased [None]
  - Blood osmolarity decreased [None]
  - Blood sodium decreased [None]
  - Blood chloride decreased [None]
  - Carbon dioxide decreased [None]
  - Blood albumin decreased [None]
  - Pleural fibrosis [None]
  - Bilirubin conjugated increased [None]
  - Prothrombin time prolonged [None]
  - International normalised ratio increased [None]
  - Pleural effusion [None]
  - Hepatotoxicity [None]
  - Epstein-Barr virus test positive [None]
  - Activated partial thromboplastin time prolonged [None]
  - Mycobacterium test positive [None]
  - Renal tubular necrosis [None]
  - Dialysis [None]
  - Fluid overload [None]
  - Metabolic acidosis [None]
  - Blood creatine phosphokinase increased [None]
  - Liver injury [None]
  - Rhabdomyolysis [None]
  - Hypoxia [None]
  - Hypertension [None]
